FAERS Safety Report 20090568 (Version 2)
Quarter: 2022Q2

REPORT INFORMATION
  Report Type: Spontaneous
  Country: US (occurrence: US)
  Receive Date: 20211119
  Receipt Date: 20220628
  Transmission Date: 20220721
  Serious: Yes (Hospitalization)
  Sender: FDA-Public Use
  Company Number: US-BEH-2021138148

PATIENT
  Age: 19 Year
  Sex: Female

DRUGS (8)
  1. BERINERT [Suspect]
     Active Substance: HUMAN C1-ESTERASE INHIBITOR
     Indication: Hereditary angioedema
     Dosage: 1300 INTERNATIONAL UNIT, DAILY AS NEEDED
     Route: 042
     Dates: start: 20180223
  2. BERINERT [Suspect]
     Active Substance: HUMAN C1-ESTERASE INHIBITOR
     Indication: Hereditary angioedema
     Dosage: 1300 INTERNATIONAL UNIT, DAILY AS NEEDED
     Route: 042
     Dates: start: 20180223
  3. BERINERT [Suspect]
     Active Substance: HUMAN C1-ESTERASE INHIBITOR
     Indication: Hypercoagulation
     Dosage: 1300 INTERNATIONAL UNIT, QD
     Route: 042
     Dates: start: 201802
  4. BERINERT [Suspect]
     Active Substance: HUMAN C1-ESTERASE INHIBITOR
     Indication: Hypercoagulation
     Dosage: 1300 INTERNATIONAL UNIT, QD
     Route: 042
     Dates: start: 201802
  5. BERINERT [Suspect]
     Active Substance: HUMAN C1-ESTERASE INHIBITOR
     Indication: Asthma
     Dosage: 1300 INTERNATIONAL UNIT, QD
     Route: 042
     Dates: start: 20191016
  6. BERINERT [Suspect]
     Active Substance: HUMAN C1-ESTERASE INHIBITOR
     Indication: Asthma
     Dosage: 1300 INTERNATIONAL UNIT, QD
     Route: 042
     Dates: start: 20191016
  7. BERINERT [Suspect]
     Active Substance: HUMAN C1-ESTERASE INHIBITOR
     Indication: Urticaria
  8. BERINERT [Suspect]
     Active Substance: HUMAN C1-ESTERASE INHIBITOR
     Indication: Urticaria

REACTIONS (4)
  - Weight increased [Unknown]
  - No adverse event [Unknown]
  - Off label use [Unknown]
  - Drug ineffective [Unknown]

NARRATIVE: CASE EVENT DATE: 20220426
